FAERS Safety Report 15543008 (Version 1)
Quarter: 2018Q4

REPORT INFORMATION
  Report Type: Spontaneous
  Country: US (occurrence: US)
  Receive Date: 20181023
  Receipt Date: 20181023
  Transmission Date: 20190205
  Serious: No
  Sender: FDA-Public Use
  Company Number: US-ASTRAZENECA-2018SF24181

PATIENT
  Age: 823 Month
  Sex: Male
  Weight: 79.4 kg

DRUGS (3)
  1. BYDUREON BCISE [Suspect]
     Active Substance: EXENATIDE
     Indication: TYPE 2 DIABETES MELLITUS
     Route: 058
     Dates: start: 201807
  2. METFORMIN [Concomitant]
     Active Substance: METFORMIN HYDROCHLORIDE
     Indication: TYPE 2 DIABETES MELLITUS
     Route: 048
     Dates: start: 200911
  3. BYDUREON BCISE [Suspect]
     Active Substance: EXENATIDE
     Indication: HAEMOGLOBIN ABNORMAL
     Route: 058
     Dates: start: 201807

REACTIONS (4)
  - Injection site pain [Unknown]
  - Incorrect route of product administration [Unknown]
  - Skin atrophy [Unknown]
  - Injection site haemorrhage [Not Recovered/Not Resolved]

NARRATIVE: CASE EVENT DATE: 201807
